FAERS Safety Report 7471786-7 (Version None)
Quarter: 2011Q2

REPORT INFORMATION
  Report Type: 
  Country: None (occurrence: None)
  Receive Date: 20110511
  Receipt Date: 20100428
  Transmission Date: 20111010
  Serious: No
  Sender: FDA-Public Use
  Company Number: A0857346A

PATIENT
  Age: 41 Year
  Sex: Female
  Weight: 52.7 kg

DRUGS (2)
  1. NO CONCURRENT MEDICATIONS [Concomitant]
  2. TYKERB [Suspect]
     Indication: BREAST CANCER
     Dosage: 250MG FIVE TIMES PER DAY
     Route: 048
     Dates: start: 20100423, end: 20100424

REACTIONS (8)
  - MULTIPLE ALLERGIES [None]
  - DIARRHOEA [None]
  - EJECTION FRACTION DECREASED [None]
  - NAUSEA [None]
  - FATIGUE [None]
  - ANXIETY [None]
  - HEADACHE [None]
  - DEPRESSION [None]
